FAERS Safety Report 9785369 (Version 1)
Quarter: 2013Q4

REPORT INFORMATION
  Report Type: Spontaneous
  Country: US (occurrence: None)
  Receive Date: 20131226
  Receipt Date: 20131226
  Transmission Date: 20140711
  Serious: Yes (Hospitalization)
  Sender: FDA-Public Use
  Company Number: None

PATIENT
  Age: 67 Year
  Sex: Female
  Weight: 65.77 kg

DRUGS (1)
  1. TAMIFLU [Suspect]
     Indication: INFLUENZA
     Dosage: 75 MG 1PILL TWICE DAILY BY MOUTH
     Route: 048
     Dates: start: 20131106, end: 20131107

REACTIONS (3)
  - Stevens-Johnson syndrome [None]
  - Fatigue [None]
  - Pyrexia [None]
